FAERS Safety Report 9467454 (Version 1)
Quarter: 2013Q3

REPORT INFORMATION
  Report Type: Report from Study
  Country: US (occurrence: US)
  Receive Date: 20130821
  Receipt Date: 20130821
  Transmission Date: 20140515
  Serious: Yes (Hospitalization)
  Sender: FDA-Public Use
  Company Number: PHEH2013US017598

PATIENT
  Sex: Male
  Weight: 50.34 kg

DRUGS (5)
  1. EXJADE [Suspect]
     Indication: IRON OVERLOAD
     Dosage: 200 MG, DAILY
     Route: 048
     Dates: start: 20130724, end: 20130802
  2. METAPROTERENOL [Concomitant]
     Dosage: UNK UKN, UNK
  3. SIMVASTATIN [Concomitant]
     Dosage: UNK UKN, UNK
  4. ASPIRIN [Concomitant]
     Dosage: UNK UKN, UNK
  5. VITAMIN B 12 [Concomitant]
     Dosage: UNK UKN, UNK

REACTIONS (1)
  - Streptococcal infection [Unknown]
